FAERS Safety Report 19953882 (Version 1)
Quarter: 2021Q4

REPORT INFORMATION
  Report Type: Spontaneous
  Country: US (occurrence: US)
  Receive Date: 20211014
  Receipt Date: 20211014
  Transmission Date: 20220304
  Serious: Yes (Hospitalization, Other)
  Sender: FDA-Public Use
  Company Number: US-INCYTE CORPORATION-2021IN009261

PATIENT

DRUGS (1)
  1. JAKAFI [Suspect]
     Active Substance: RUXOLITINIB
     Indication: Myelofibrosis
     Dosage: 15 MILLIGRAM, BID (AS DIRECTED AVOID GRAPEFRUIT PRODUCTS. MAY TAKE WITH OR WITHOUT FOOD)
     Route: 048
     Dates: start: 20180120

REACTIONS (2)
  - Femur fracture [Unknown]
  - Product dose omission issue [Unknown]
